FAERS Safety Report 8156700-3 (Version None)
Quarter: 2012Q1

REPORT INFORMATION
  Report Type: 
  Country: None (occurrence: None)
  Receive Date: 20120222
  Receipt Date: 20120214
  Transmission Date: 20120608
  Serious: Yes (Other)
  Sender: FDA-Public Use
  Company Number: US-BAYER-200915177NA

PATIENT
  Age: 55 Year
  Sex: Male
  Weight: 102.27 kg

DRUGS (7)
  1. FINASTERIDE [Concomitant]
     Dates: start: 20060501
  2. PLAVIX [Suspect]
     Indication: PRODUCT USED FOR UNKNOWN INDICATION
  3. METOPROLOL TARTRATE [Concomitant]
     Dates: start: 20060501
  4. SIMVASTATIN [Concomitant]
     Dates: start: 20060501
  5. ASPIRIN [Suspect]
     Indication: PRODUCT USED FOR UNKNOWN INDICATION
     Dosage: LOW DOSE
  6. LEVITRA [Suspect]
     Indication: ERECTILE DYSFUNCTION
     Dosage: 1/2 TAB/DAY FOR 2 DAYS
     Dates: start: 20090220, end: 20090221
  7. LISINOPRIL [Concomitant]
     Dates: start: 20060501

REACTIONS (1)
  - HAEMATOSPERMIA [None]
